FAERS Safety Report 23540103 (Version 1)
Quarter: 2024Q1

REPORT INFORMATION
  Report Type: Report from Study
  Country: JP (occurrence: JP)
  Receive Date: 20240219
  Receipt Date: 20240219
  Transmission Date: 20240410
  Serious: Yes (Hospitalization)
  Sender: FDA-Public Use
  Company Number: JP-RIGEL Pharmaceuticals, INC-2024FOS000152

PATIENT
  Age: 58 Year
  Sex: Female

DRUGS (3)
  1. FOSTAMATINIB DISODIUM [Suspect]
     Active Substance: FOSTAMATINIB DISODIUM
     Indication: Immune thrombocytopenia
     Dosage: 300 MG, QD
     Route: 048
     Dates: start: 20231206, end: 202401
  2. FOSTAMATINIB DISODIUM [Suspect]
     Active Substance: FOSTAMATINIB DISODIUM
     Dosage: 300 MG, QD
     Route: 048
     Dates: start: 20240126
  3. NIFEDIPINE [Concomitant]
     Active Substance: NIFEDIPINE
     Indication: Product used for unknown indication
     Dosage: UNK
     Route: 048

REACTIONS (1)
  - Diverticular perforation [Recovering/Resolving]

NARRATIVE: CASE EVENT DATE: 20240115
